FAERS Safety Report 4411519-1 (Version None)
Quarter: 2004Q2

REPORT INFORMATION
  Report Type: 
  Country: None (occurrence: None)
  Receive Date: 20040630
  Receipt Date: 20040315
  Transmission Date: 20050107
  Serious: No
  Sender: FDA-Public Use
  Company Number: 04P-163-0253584-00

PATIENT
  Age: 52 Year
  Sex: Female
  Weight: 72.5755 kg

DRUGS (14)
  1. HUMIRA [Suspect]
     Indication: RHEUMATOID ARTHRITIS
     Dosage: 40 MG, 1 IN 2 WK, SUBCUTANEOUS
     Route: 058
     Dates: start: 20040312
  2. METHOTREXATE [Concomitant]
  3. CELECOXIB [Concomitant]
  4. BUCINDOLOL HYDROCHLORIDE [Concomitant]
  5. MULTI-VITAMINS [Concomitant]
  6. CALCIUM WITH VITAMIN D [Concomitant]
  7. ASCORBIC ACID [Concomitant]
  8. TOCOPHEROL CONCENTRATE CAP [Concomitant]
  9. ESOMEPRAZOLE [Concomitant]
  10. PRAVASTATIN SODIUM [Concomitant]
  11. FOLIC ACID [Concomitant]
  12. FEXOFENADINE HYDROCHLORIDE [Concomitant]
  13. CONJUGATED ESTROGEN [Concomitant]
  14. ALLERGY SHOTS [Concomitant]

REACTIONS (4)
  - CHILLS [None]
  - OEDEMA PERIPHERAL [None]
  - PAIN [None]
  - RASH [None]
